FAERS Safety Report 11805149 (Version 2)
Quarter: 2016Q3

REPORT INFORMATION
  Report Type: Spontaneous
  Country: US (occurrence: US)
  Receive Date: 20151206
  Receipt Date: 20160903
  Transmission Date: 20161109
  Serious: No
  Sender: FDA-Public Use
  Company Number: US-ASTRAZENECA-2015SF18493

PATIENT
  Age: 736 Month
  Sex: Female
  Weight: 55.8 kg

DRUGS (10)
  1. BABY ASPIRIN [Concomitant]
     Active Substance: ASPIRIN
     Indication: CEREBROVASCULAR ACCIDENT
     Dosage: 81.0MG UNKNOWN
     Route: 048
  2. HYDROCODONE [Concomitant]
     Active Substance: HYDROCODONE
     Indication: PAIN
     Route: 048
  3. BABY ASPIRIN [Concomitant]
     Active Substance: ASPIRIN
     Indication: NEOPLASM MALIGNANT
     Dosage: 81.0MG UNKNOWN
     Route: 048
  4. ALPRAZOLAM. [Concomitant]
     Active Substance: ALPRAZOLAM
     Indication: ANXIETY
     Route: 048
     Dates: start: 20151026
  5. TUDORZA PRESSAIR [Suspect]
     Active Substance: ACLIDINIUM BROMIDE
     Indication: CHRONIC OBSTRUCTIVE PULMONARY DISEASE
     Dosage: 400MCG, INHALATION, SECOND INHALER
     Route: 055
     Dates: start: 20151028
  6. IBUPROFEN. [Concomitant]
     Active Substance: IBUPROFEN
     Indication: PAIN
     Dosage: 600.0MG AS REQUIRED
     Route: 048
  7. GABAPENTIN. [Concomitant]
     Active Substance: GABAPENTIN
     Indication: NERVOUS SYSTEM DISORDER
     Route: 048
  8. TUDORZA PRESSAIR [Suspect]
     Active Substance: ACLIDINIUM BROMIDE
     Indication: CHRONIC OBSTRUCTIVE PULMONARY DISEASE
     Dosage: 400MCG, INHALATION,FIRST INHALER
     Route: 055
     Dates: start: 201510
  9. HYDROCODONE [Concomitant]
     Active Substance: HYDROCODONE
     Indication: PAIN
     Route: 048
  10. MEDICINAL CANNABIS [Concomitant]
     Indication: ANXIETY

REACTIONS (11)
  - Chest discomfort [Unknown]
  - Cough [Unknown]
  - Intentional product misuse [Unknown]
  - Underdose [Unknown]
  - Intentional device misuse [Unknown]
  - Device issue [Unknown]
  - Chest pain [Unknown]
  - Pyrexia [Unknown]
  - Head discomfort [Unknown]
  - Pain [Unknown]
  - Device failure [Unknown]

NARRATIVE: CASE EVENT DATE: 201510
